FAERS Safety Report 8500686-6 (Version None)
Quarter: 2012Q3

REPORT INFORMATION
  Report Type: 
  Country: None (occurrence: None)
  Receive Date: 20120710
  Receipt Date: 20120706
  Transmission Date: 20120928
  Serious: Yes (Hospitalization)
  Sender: FDA-Public Use
  Company Number: AT-ROCHE-1084843

PATIENT
  Sex: Male

DRUGS (11)
  1. AVASTIN [Suspect]
     Indication: ADENOCARCINOMA
     Dates: start: 20120301
  2. ASPIRIN [Concomitant]
  3. AMLODIPINE [Concomitant]
  4. GEMCITABINE [Concomitant]
  5. ZOFRAN [Concomitant]
  6. CORTISONE ACETATE [Concomitant]
  7. HYDAL [Concomitant]
  8. CARBOPLATIN [Concomitant]
  9. AVASTIN [Suspect]
     Indication: BRONCHIAL CARCINOMA
  10. ZOLPIDEM TARTRATE [Concomitant]
  11. ATACAND [Concomitant]

REACTIONS (1)
  - LYMPH NODE CALCIFICATION [None]
